FAERS Safety Report 6603615-5 (Version None)
Quarter: 2010Q1

REPORT INFORMATION
  Report Type: 
  Country: None (occurrence: None)
  Receive Date: 20100226
  Receipt Date: 20091119
  Transmission Date: 20100710
  Serious: No
  Sender: FDA-Public Use
  Company Number: A0832080A

PATIENT
  Age: 57 Year
  Sex: Female

DRUGS (2)
  1. VALTREX [Suspect]
     Dosage: 1G THREE TIMES PER DAY
  2. VITAMIN B-12 [Concomitant]

REACTIONS (1)
  - BLOOD PRESSURE INCREASED [None]
